FAERS Safety Report 26085059 (Version 1)
Quarter: 2025Q4

REPORT INFORMATION
  Report Type: Spontaneous
  Country: CN (occurrence: CN)
  Receive Date: 20251125
  Receipt Date: 20251125
  Transmission Date: 20260117
  Serious: Yes (Hospitalization)
  Sender: BEIGENE
  Company Number: CN-BEONE MEDICINES-BGN-2025-020431

PATIENT
  Age: 69 Year
  Sex: Male
  Weight: 60 kg

DRUGS (12)
  1. TISLELIZUMAB [Suspect]
     Active Substance: TISLELIZUMAB
     Indication: Squamous cell carcinoma of lung
     Dosage: 200 MILLIGRAM
  2. TISLELIZUMAB [Suspect]
     Active Substance: TISLELIZUMAB
     Dosage: 200 MILLIGRAM
     Route: 041
  3. TISLELIZUMAB [Suspect]
     Active Substance: TISLELIZUMAB
     Dosage: 200 MILLIGRAM
     Route: 041
  4. TISLELIZUMAB [Suspect]
     Active Substance: TISLELIZUMAB
     Dosage: 200 MILLIGRAM
  5. SACITUZUMAB TIRUMOTECAN [Suspect]
     Active Substance: SACITUZUMAB TIRUMOTECAN
     Indication: Squamous cell carcinoma of lung
     Dosage: 200 MILLIGRAM
  6. SACITUZUMAB TIRUMOTECAN [Suspect]
     Active Substance: SACITUZUMAB TIRUMOTECAN
     Dosage: 200 MILLIGRAM
     Route: 041
  7. SACITUZUMAB TIRUMOTECAN [Suspect]
     Active Substance: SACITUZUMAB TIRUMOTECAN
     Dosage: 200 MILLIGRAM
     Route: 041
  8. SACITUZUMAB TIRUMOTECAN [Suspect]
     Active Substance: SACITUZUMAB TIRUMOTECAN
     Dosage: 200 MILLIGRAM
  9. ENDOSTATIN [Suspect]
     Active Substance: ENDOSTATIN
     Indication: Squamous cell carcinoma of lung
     Dosage: 210 MILLIGRAM
  10. ENDOSTATIN [Suspect]
     Active Substance: ENDOSTATIN
     Dosage: 210 MILLIGRAM
  11. ENDOSTATIN [Suspect]
     Active Substance: ENDOSTATIN
     Dosage: 210 MILLIGRAM
  12. ENDOSTATIN [Suspect]
     Active Substance: ENDOSTATIN
     Dosage: 210 MILLIGRAM

REACTIONS (1)
  - Skin ulcer [Recovering/Resolving]

NARRATIVE: CASE EVENT DATE: 20251110
